FAERS Safety Report 8216851-1 (Version None)
Quarter: 2012Q1

REPORT INFORMATION
  Report Type: 
  Country: None (occurrence: None)
  Receive Date: 20120316
  Receipt Date: 20120307
  Transmission Date: 20120608
  Serious: Yes (Hospitalization)
  Sender: FDA-Public Use
  Company Number: CA-ASTRAZENECA-2011SE68821

PATIENT
  Age: 71 Year
  Sex: Female

DRUGS (11)
  1. AMLODIPINE [Concomitant]
     Route: 048
  2. ATORVASTATIN CALCIUM [Concomitant]
     Route: 048
  3. NEXIUM [Suspect]
     Indication: GASTROOESOPHAGEAL REFLUX DISEASE
     Route: 048
     Dates: start: 20070101, end: 20100507
  4. NEXIUM [Suspect]
     Route: 048
     Dates: start: 20100501, end: 20100618
  5. GABAPENTIN [Concomitant]
     Route: 048
  6. HYDRALAZINE HCL [Concomitant]
     Route: 048
  7. METOPROLOL SUCCINATE [Concomitant]
     Route: 048
  8. RAMIPRIL [Concomitant]
     Route: 048
  9. ASPIRIN [Concomitant]
     Route: 048
  10. PIOGLITAZONE [Concomitant]
     Route: 048
  11. GABAPENTIN [Concomitant]
     Route: 048

REACTIONS (10)
  - ASTHENIA [None]
  - BLOOD PARATHYROID HORMONE INCREASED [None]
  - CHEST PAIN [None]
  - HYPERTENSION [None]
  - DYSPNOEA [None]
  - HYPOKALAEMIA [None]
  - BLOOD PHOSPHORUS DECREASED [None]
  - HYPOMAGNESAEMIA [None]
  - HYPOAESTHESIA [None]
  - DIARRHOEA [None]
